FAERS Safety Report 5972594-6 (Version None)
Quarter: 2008Q4

REPORT INFORMATION
  Report Type: 
  Country: None (occurrence: None)
  Receive Date: 20081125
  Receipt Date: 20081111
  Transmission Date: 20090506
  Serious: Yes (Death)
  Sender: FDA-Public Use
  Company Number: ADE# 08-185

PATIENT
  Weight: 37.195 kg

DRUGS (3)
  1. TRAMADOL HYDROCHLORIDE [Suspect]
     Indication: PROCEDURAL PAIN
     Dosage: 1 1/2 TABLETS 2X DAILY
     Dates: start: 20081101
  2. METACAN [Concomitant]
  3. BAYTRIL [Concomitant]

REACTIONS (2)
  - DUODENAL PERFORATION [None]
  - PERITONITIS [None]
